FAERS Safety Report 20517440 (Version 1)
Quarter: 2022Q1

REPORT INFORMATION
  Report Type: Spontaneous
  Country: US (occurrence: None)
  Receive Date: 20220224
  Receipt Date: 20220224
  Transmission Date: 20220423
  Serious: Yes (Hospitalization)
  Sender: FDA-Public Use
  Company Number: None

PATIENT
  Age: 76 Year
  Sex: Male
  Weight: 87 kg

DRUGS (1)
  1. AXITINIB [Suspect]
     Active Substance: AXITINIB
     Indication: Metastases to kidney
     Dosage: 7 MG BID PO?
     Route: 048
     Dates: start: 20220206, end: 20220208

REACTIONS (2)
  - Posterior reversible encephalopathy syndrome [None]
  - Hypertension [None]

NARRATIVE: CASE EVENT DATE: 20220208
